FAERS Safety Report 17926244 (Version 3)
Quarter: 2022Q3

REPORT INFORMATION
  Report Type: Spontaneous
  Country: US (occurrence: US)
  Receive Date: 20200623
  Receipt Date: 20220907
  Transmission Date: 20221026
  Serious: Yes (Hospitalization, Other)
  Sender: FDA-Public Use
  Company Number: US-MICRO LABS LIMITED-ML2020-01798

PATIENT
  Age: 63 Year
  Sex: Male

DRUGS (14)
  1. BUPROPION [Suspect]
     Active Substance: BUPROPION
     Indication: Depression
     Dosage: EXTENDED RELEASE 150 MG
     Route: 048
  2. BUSPIRONE [Suspect]
     Active Substance: BUSPIRONE HYDROCHLORIDE
     Indication: Depression
     Route: 048
  3. DESVENLAFAXINE [Suspect]
     Active Substance: DESVENLAFAXINE
     Indication: Depression
     Dosage: EXTENDED RELEASE 100 MG
     Route: 048
  4. TRAZODONE [Suspect]
     Active Substance: TRAZODONE HYDROCHLORIDE
     Indication: Depression
     Dosage: 50 MG EVERY NIGHT AT BEDTIME
     Route: 048
  5. ZIPRASIDONE [Suspect]
     Active Substance: ZIPRASIDONE
     Indication: Depression
     Route: 048
  6. HERBALS\MITRAGYNINE [Suspect]
     Active Substance: HERBALS\MITRAGYNINE
     Indication: Depression
     Dosage: POWDER IN A DRINK FOR THREE TIMES DAILY
  7. DICLOFENAC SODIUM [Concomitant]
     Active Substance: DICLOFENAC SODIUM
  8. TIZANIDINE [Concomitant]
     Active Substance: TIZANIDINE
  9. Gabapentin. [Concomitant]
  10. Glimepiride. [Concomitant]
  11. METFORMIN [Concomitant]
     Active Substance: METFORMIN HYDROCHLORIDE
  12. OMEPRAZOLE [Concomitant]
     Active Substance: OMEPRAZOLE
  13. Hydrochlorothiazide, [Concomitant]
  14. AMLODIPINE [Concomitant]
     Active Substance: AMLODIPINE BESYLATE

REACTIONS (2)
  - Serotonin syndrome [Recovered/Resolved]
  - Drug interaction [Unknown]
